FAERS Safety Report 15448648 (Version 2)
Quarter: 2020Q1

REPORT INFORMATION
  Report Type: Spontaneous
  Country: US (occurrence: US)
  Receive Date: 20180929
  Receipt Date: 20200313
  Transmission Date: 20200409
  Serious: No
  Sender: FDA-Public Use
  Company Number: US-SA-2018SA269172

PATIENT
  Age: 56 Year
  Sex: Female

DRUGS (1)
  1. DUPIXENT [Suspect]
     Active Substance: DUPILUMAB
     Indication: DERMATITIS ATOPIC
     Dosage: 300 MG, OTHER
     Route: 058
     Dates: start: 201805

REACTIONS (6)
  - Fatigue [Unknown]
  - Dry eye [Unknown]
  - Pyrexia [Unknown]
  - Dry skin [Unknown]
  - Pain [Unknown]
  - Eye pruritus [Unknown]

NARRATIVE: CASE EVENT DATE: 20180921
